FAERS Safety Report 6317399-1 (Version None)
Quarter: 2009Q3

REPORT INFORMATION
  Report Type: 
  Country: None (occurrence: None)
  Receive Date: 20090821
  Receipt Date: 20090814
  Transmission Date: 20100115
  Serious: Yes (Hospitalization)
  Sender: FDA-Public Use
  Company Number: US-WYE-H10347309

PATIENT
  Sex: Female
  Weight: 76.73 kg

DRUGS (11)
  1. METHYLNALTREXONE BROMIDE [Suspect]
     Indication: CONSTIPATION
     Route: 058
     Dates: start: 20090715, end: 20090721
  2. MORPHINE SULFATE [Concomitant]
     Indication: FIBROMYALGIA
     Dosage: UNSPECIFIED
     Route: 065
     Dates: start: 20080101
  3. ARTHROTEC [Concomitant]
     Indication: FIBROMYALGIA
     Dosage: UNSPECIFIED
     Route: 065
     Dates: start: 20030101
  4. FLEXERIL [Concomitant]
     Indication: FIBROMYALGIA
     Dosage: UNSPECIFIED
     Route: 065
     Dates: start: 20040101
  5. DEPAKOTE [Concomitant]
     Indication: MIGRAINE
     Dosage: UNSPECIFIED
     Route: 065
     Dates: start: 20080901
  6. ZESTRIL [Concomitant]
     Indication: HYPERTENSION
     Dosage: UNSPECIFIED
     Route: 065
     Dates: start: 20090201
  7. AMBIEN [Concomitant]
     Indication: INSOMNIA
     Dosage: UNSPECIFIED
     Route: 065
     Dates: start: 20040101
  8. PAXIL [Concomitant]
     Indication: DEPRESSION
     Dosage: UNSPECIFIED
     Route: 065
     Dates: start: 19900101
  9. PRAVACHOL [Concomitant]
     Indication: HYPERCHOLESTEROLAEMIA
     Dosage: UNSPECIFIED
     Route: 065
     Dates: start: 20080101
  10. AVINZA [Concomitant]
     Indication: FIBROMYALGIA
     Dosage: UNSPECIFIED
     Route: 065
     Dates: start: 20080101
  11. INDERAL [Concomitant]
     Indication: HYPERTENSION
     Dosage: UNSPECIFIED
     Route: 065
     Dates: start: 20080101

REACTIONS (2)
  - RENAL FAILURE ACUTE [None]
  - SHOCK [None]
